FAERS Safety Report 5387540-6 (Version None)
Quarter: 2007Q3

REPORT INFORMATION
  Report Type: 
  Country: None (occurrence: None)
  Receive Date: 20070712
  Receipt Date: 20070629
  Transmission Date: 20080115
  Serious: Yes (Disabling)
  Sender: FDA-Public Use
  Company Number: 100#08#2007-02451

PATIENT
  Age: 50 Year
  Sex: Female

DRUGS (5)
  1. ETHAMBUTOL HYDROCHLORIDE [Suspect]
     Indication: PULMONARY TUBERCULOMA
     Dosage: 1200 MG
  2. ISONIAZID [Suspect]
     Indication: PULMONARY TUBERCULOMA
     Dosage: 300 MG (DAILY)
  3. RIFAMPICIN [Concomitant]
  4. PYRIDOXINE (PYRIDOXINE) (PYRIDOXINE) [Concomitant]
  5. PYRAZINAMIDE [Concomitant]

REACTIONS (5)
  - COLOUR BLINDNESS [None]
  - HYPOAESTHESIA [None]
  - NEUROPATHY PERIPHERAL [None]
  - OPTIC NEURITIS [None]
  - VISION BLURRED [None]
